FAERS Safety Report 25823658 (Version 1)
Quarter: 2025Q3

REPORT INFORMATION
  Report Type: Spontaneous
  Country: US (occurrence: US)
  Receive Date: 20250919
  Receipt Date: 20250919
  Transmission Date: 20251021
  Serious: Yes (Death)
  Sender: MYLAN
  Company Number: US-MYLANLABS-2025M1079073

PATIENT
  Age: 32 Year
  Sex: Male

DRUGS (20)
  1. FENTANYL [Suspect]
     Active Substance: FENTANYL
     Indication: Product used for unknown indication
  2. FENTANYL [Suspect]
     Active Substance: FENTANYL
     Route: 065
  3. FENTANYL [Suspect]
     Active Substance: FENTANYL
     Route: 065
  4. FENTANYL [Suspect]
     Active Substance: FENTANYL
  5. OLANZAPINE [Suspect]
     Active Substance: OLANZAPINE
     Indication: Product used for unknown indication
  6. OLANZAPINE [Suspect]
     Active Substance: OLANZAPINE
     Route: 065
  7. OLANZAPINE [Suspect]
     Active Substance: OLANZAPINE
     Route: 065
  8. OLANZAPINE [Suspect]
     Active Substance: OLANZAPINE
  9. NALOXONE [Concomitant]
     Active Substance: NALOXONE
  10. NALOXONE [Concomitant]
     Active Substance: NALOXONE
     Route: 065
  11. NALOXONE [Concomitant]
     Active Substance: NALOXONE
     Route: 065
  12. NALOXONE [Concomitant]
     Active Substance: NALOXONE
  13. METHAMPHETAMINE [Concomitant]
     Active Substance: METHAMPHETAMINE
  14. METHAMPHETAMINE [Concomitant]
     Active Substance: METHAMPHETAMINE
     Route: 065
  15. METHAMPHETAMINE [Concomitant]
     Active Substance: METHAMPHETAMINE
     Route: 065
  16. METHAMPHETAMINE [Concomitant]
     Active Substance: METHAMPHETAMINE
  17. OXYCODONE [Concomitant]
     Active Substance: OXYCODONE
  18. OXYCODONE [Concomitant]
     Active Substance: OXYCODONE
     Route: 065
  19. OXYCODONE [Concomitant]
     Active Substance: OXYCODONE
     Route: 065
  20. OXYCODONE [Concomitant]
     Active Substance: OXYCODONE

REACTIONS (1)
  - Toxicity to various agents [Fatal]
